FAERS Safety Report 20542745 (Version 1)
Quarter: 2022Q1

REPORT INFORMATION
  Report Type: Spontaneous
  Country: CN (occurrence: CN)
  Receive Date: 20220302
  Receipt Date: 20220302
  Transmission Date: 20220423
  Serious: Yes (Hospitalization)
  Sender: FDA-Public Use
  Company Number: CN-NOVARTISPH-NVSC2022CN020649

PATIENT
  Age: 5 Year
  Sex: Male
  Weight: 15.6 kg

DRUGS (4)
  1. HYCAMTIN [Suspect]
     Active Substance: TOPOTECAN HYDROCHLORIDE
     Indication: Neuroblastoma
     Dosage: 1 MG, QD
     Route: 042
     Dates: start: 20220109, end: 20220112
  2. VINDESINE [Suspect]
     Active Substance: VINDESINE
     Indication: Neuroblastoma
     Dosage: 1 MG, QD
     Route: 042
     Dates: start: 20220111, end: 20220112
  3. DOXORUBICIN [Suspect]
     Active Substance: DOXORUBICIN
     Indication: Neuroblastoma
     Dosage: 16 MG, QD
     Route: 042
     Dates: start: 20220111, end: 20220112
  4. LENOGRASTIM [Concomitant]
     Active Substance: LENOGRASTIM
     Indication: White blood cell count increased
     Dosage: UNK
     Route: 065

REACTIONS (1)
  - Myelosuppression [Recovering/Resolving]

NARRATIVE: CASE EVENT DATE: 20220117
